FAERS Safety Report 6966798-3 (Version None)
Quarter: 2010Q3

REPORT INFORMATION
  Report Type: 
  Country: None (occurrence: None)
  Receive Date: 20100906
  Receipt Date: 20100823
  Transmission Date: 20110219
  Serious: Yes (Hospitalization)
  Sender: FDA-Public Use
  Company Number: PHHY2010US51224

PATIENT
  Sex: Female
  Weight: 68 kg

DRUGS (22)
  1. RECLAST [Suspect]
     Indication: OSTEOPOROSIS
     Dosage: 5 MG ONCE IN YEAR
     Route: 042
     Dates: start: 20100510
  2. AVONEX [Suspect]
     Indication: MULTIPLE SCLEROSIS
     Dosage: 30 MCG WEEKLY
     Route: 030
     Dates: start: 20060608, end: 20060820
  3. NORTRIPTYLINE HCL [Concomitant]
     Dosage: 10 MG
     Dates: start: 20100424
  4. PRIMIDONE [Concomitant]
     Dosage: 50 MG
     Dates: start: 20100424
  5. ZANAFLEX [Concomitant]
     Dosage: 4 MG
     Dates: start: 20100424
  6. TIZANIDINE HCL [Concomitant]
     Dosage: UNK
     Dates: start: 20100424
  7. LEVOXYL [Concomitant]
     Dosage: 88 MG
     Dates: start: 20100424
  8. NEURONTIN [Concomitant]
     Dosage: 300 MG
     Dates: start: 20100424
  9. HYDROXYCHLOROQUINE [Concomitant]
     Dosage: 200 MG
     Dates: start: 20100424
  10. FUROSEMIDE [Concomitant]
     Dosage: 40 MG
     Dates: start: 20100424
  11. DETROL LA [Concomitant]
     Dosage: 4 MG
     Dates: start: 20100424
  12. OMEPRAZOLE [Concomitant]
     Dosage: 20 MG
     Dates: start: 20100424
  13. DILAUDID [Concomitant]
     Dosage: 2 MG
     Dates: start: 20100424
  14. AMBIEN CR [Concomitant]
     Dosage: 12.5 MG
     Dates: start: 20100424
  15. PROPOXYPHENE NAPSYLATE AND ACETAMINOPHEN [Concomitant]
     Dosage: 100/650 MG
     Dates: start: 20100424
  16. LOMOTIL [Concomitant]
     Dosage: UNK
     Dates: start: 20100424
  17. RESTASIS [Concomitant]
     Dosage: UNK
     Dates: start: 20100424
  18. PROCHLORPERAZINE [Concomitant]
     Dosage: 10 MG
     Dates: start: 20100424
  19. VITAMIN B-12 [Concomitant]
     Dosage: 1000 MG
     Dates: start: 20100424
  20. PREDNISONE [Concomitant]
     Dosage: 5 MG
     Dates: start: 20100424
  21. HYDROXYZINE [Concomitant]
     Dosage: 25 MG
     Dates: start: 20100424
  22. ONDANSETRON [Concomitant]
     Dosage: 8 MG
     Dates: start: 20100424

REACTIONS (9)
  - ASTHENIA [None]
  - CIRCULATORY COLLAPSE [None]
  - CONFUSIONAL STATE [None]
  - DEHYDRATION [None]
  - HYPOCALCAEMIA [None]
  - HYPONATRAEMIA [None]
  - POOR VENOUS ACCESS [None]
  - PYREXIA [None]
  - SYSTEMIC LUPUS ERYTHEMATOSUS [None]
